FAERS Safety Report 14328455 (Version 1)
Quarter: 2017Q4

REPORT INFORMATION
  Report Type: Spontaneous
  Country: US (occurrence: US)
  Receive Date: 20171227
  Receipt Date: 20171227
  Transmission Date: 20180321
  Serious: Yes (Hospitalization)
  Sender: FDA-Public Use
  Company Number: None

PATIENT
  Age: 81 Year
  Sex: Female

DRUGS (10)
  1. NEXIUM [Concomitant]
     Active Substance: ESOMEPRAZOLE MAGNESIUM
  2. ST JOSEPH AS [Concomitant]
  3. LIPITOR [Concomitant]
     Active Substance: ATORVASTATIN CALCIUM
  4. CLONIDINE. [Concomitant]
     Active Substance: CLONIDINE
  5. METOPROLOL. [Concomitant]
     Active Substance: METOPROLOL
  6. BABY ASPIRIN [Concomitant]
     Active Substance: ASPIRIN
  7. LEVOTHYROXIN [Concomitant]
     Active Substance: LEVOTHYROXINE
  8. VALSARTAN. [Concomitant]
     Active Substance: VALSARTAN
  9. PROLIA [Suspect]
     Active Substance: DENOSUMAB
     Indication: OSTEOPOROSIS
     Dosage: ?          OTHER FREQUENCY:Q6M;?
     Route: 058
     Dates: start: 20110405
  10. CALTRATE+D [Concomitant]

REACTIONS (2)
  - Spinal fracture [None]
  - Fall [None]

NARRATIVE: CASE EVENT DATE: 20171101
